FAERS Safety Report 11297892 (Version 1)
Quarter: 2015Q3

REPORT INFORMATION
  Report Type: Spontaneous
  Country: US (occurrence: US)
  Receive Date: 20150722
  Receipt Date: 20150722
  Transmission Date: 20151125
  Serious: No
  Sender: FDA-Public Use
  Company Number: US-ELI_LILLY_AND_COMPANY-US201008001787

PATIENT
  Sex: Female

DRUGS (2)
  1. HUMATROPE [Suspect]
     Active Substance: SOMATROPIN
     Dosage: 1.4 MG, QOD
  2. HUMATROPE [Suspect]
     Active Substance: SOMATROPIN
     Dosage: 1.2 MG, QOD

REACTIONS (3)
  - Incorrect dose administered [Unknown]
  - Intentional product misuse [Unknown]
  - Product preparation error [Unknown]

NARRATIVE: CASE EVENT DATE: 2010
